FAERS Safety Report 16167314 (Version 2)
Quarter: 2019Q2

REPORT INFORMATION
  Report Type: Report from Study
  Country: MX (occurrence: MX)
  Receive Date: 20190408
  Receipt Date: 20190611
  Transmission Date: 20190711
  Serious: Yes (Disabling, Other)
  Sender: FDA-Public Use
  Company Number: MX-EMD SERONO-9083563

PATIENT
  Sex: Female

DRUGS (1)
  1. REBIF [Suspect]
     Active Substance: INTERFERON BETA-1A
     Indication: MULTIPLE SCLEROSIS
     Route: 058
     Dates: start: 20160428

REACTIONS (7)
  - Rhinitis [Unknown]
  - Dyskinesia [Not Recovered/Not Resolved]
  - Pneumonia [Unknown]
  - Sinusitis [Unknown]
  - Gait disturbance [Not Recovered/Not Resolved]
  - Pain in extremity [Not Recovered/Not Resolved]
  - Multiple sclerosis [Unknown]
